APPROVED DRUG PRODUCT: AMPICILLIN TRIHYDRATE
Active Ingredient: AMPICILLIN/AMPICILLIN TRIHYDRATE
Strength: EQ 250MG BASE
Dosage Form/Route: CAPSULE;ORAL
Application: A061387 | Product #001
Applicant: VITARINE PHARMACEUTICALS INC
Approved: Approved Prior to Jan 1, 1982 | RLD: No | RS: No | Type: DISCN